FAERS Safety Report 5945086-8 (Version None)
Quarter: 2008Q4

REPORT INFORMATION
  Report Type: 
  Country: None (occurrence: None)
  Receive Date: 20081107
  Receipt Date: 20081030
  Transmission Date: 20090506
  Serious: Yes (Hospitalization)
  Sender: FDA-Public Use
  Company Number: US-GENENTECH-270756

PATIENT
  Age: 3 Year
  Sex: Female
  Weight: 11.5 kg

DRUGS (2)
  1. RITUXAN [Suspect]
     Indication: ENCEPHALITIS
     Dosage: 375 MG/M2, UNK
     Route: 042
     Dates: start: 20081018
  2. CORTICOSTEROID (UNK INGREDIENTS) [Concomitant]
     Indication: PREMEDICATION

REACTIONS (1)
  - ENCEPHALITIS [None]
